FAERS Safety Report 8420093-4 (Version None)
Quarter: 2012Q2

REPORT INFORMATION
  Report Type: 
  Country: None (occurrence: None)
  Receive Date: 20120323
  Receipt Date: 20111111
  Transmission Date: 20120825
  Serious: Yes (Hospitalization, Other)
  Sender: FDA-Public Use
  Company Number: 163-21880-11112570

PATIENT
  Age: 62 Year
  Sex: Male
  Weight: 74.8435 kg

DRUGS (5)
  1. LENALIDOMIDE [Suspect]
     Indication: MULTIPLE MYELOMA
     Dosage: 10 MG, DAILY, PO
     Route: 048
     Dates: start: 20111001
  2. FERROUS SULFATE TAB [Concomitant]
  3. NEURONTIN [Concomitant]
  4. ONE A DAY MENS (ONE A DAY MENS) [Concomitant]
  5. ACYCLOVIR [Concomitant]

REACTIONS (3)
  - PNEUMONIA [None]
  - FULL BLOOD COUNT DECREASED [None]
  - ASTHENIA [None]
